FAERS Safety Report 9431945 (Version 1)
Quarter: 2013Q3

REPORT INFORMATION
  Report Type: Spontaneous
  Country: BE (occurrence: BE)
  Receive Date: 20130731
  Receipt Date: 20130731
  Transmission Date: 20140515
  Serious: Yes (Hospitalization, Other)
  Sender: FDA-Public Use
  Company Number: BE-JNJFOC-20130712415

PATIENT
  Age: 86 Year
  Sex: Female

DRUGS (5)
  1. ABCIXIMAB [Suspect]
     Indication: CORONARY ANGIOPLASTY
     Route: 065
     Dates: start: 20130628
  2. ANGIOX [Suspect]
     Indication: CORONARY ANGIOPLASTY
     Route: 065
  3. ANGIOX [Suspect]
     Indication: CORONARY ANGIOPLASTY
     Route: 065
     Dates: start: 20130628
  4. EFFIENT [Concomitant]
     Indication: ARTERIAL OCCLUSIVE DISEASE
     Route: 048
     Dates: start: 20130628
  5. EFFIENT [Concomitant]
     Indication: ARTERIAL OCCLUSIVE DISEASE
     Route: 048
     Dates: start: 20130717

REACTIONS (2)
  - Device occlusion [Unknown]
  - Treatment noncompliance [Unknown]
